FAERS Safety Report 6197051-6 (Version None)
Quarter: 2009Q2

REPORT INFORMATION
  Report Type: 
  Country: None (occurrence: None)
  Receive Date: 20090520
  Receipt Date: 20090513
  Transmission Date: 20091009
  Serious: Yes (Other)
  Sender: FDA-Public Use
  Company Number: US-ASTRAZENECA-2009UW12449

PATIENT
  Age: 58 Year
  Sex: Female
  Weight: 90.7 kg

DRUGS (8)
  1. NEXIUM [Suspect]
     Route: 048
  2. NEXIUM [Suspect]
     Route: 048
     Dates: start: 20090501
  3. PLAVIX [Concomitant]
  4. ASACOL [Concomitant]
  5. ATENOLOL [Concomitant]
  6. PREMARIN [Concomitant]
  7. LEXAPRO [Concomitant]
  8. LIPITOR [Concomitant]

REACTIONS (5)
  - DIARRHOEA [None]
  - GASTROINTESTINAL PAIN [None]
  - INTERVERTEBRAL DISC PROTRUSION [None]
  - IRRITABLE BOWEL SYNDROME [None]
  - WEIGHT INCREASED [None]
